FAERS Safety Report 21268894 (Version 1)
Quarter: 2022Q3

REPORT INFORMATION
  Report Type: Spontaneous
  Country: NL (occurrence: NL)
  Receive Date: 20220830
  Receipt Date: 20220830
  Transmission Date: 20221027
  Serious: Yes (Other)
  Sender: FDA-Public Use
  Company Number: None

PATIENT
  Sex: Female
  Weight: 46 kg

DRUGS (2)
  1. SIMPONI [Suspect]
     Active Substance: GOLIMUMAB
     Indication: Osteomyelitis chronic
     Dosage: 50 MG 1X PER 4 WEEK
     Route: 065
     Dates: start: 20211209, end: 20220708
  2. METHOTREXATE 10mg Tablet [Concomitant]
     Dosage: TABLET, 10 MG (MILLIGRAM)

REACTIONS (1)
  - Malignant melanoma [Not Recovered/Not Resolved]
